FAERS Safety Report 6931210-7 (Version None)
Quarter: 2010Q3

REPORT INFORMATION
  Report Type: 
  Country: None (occurrence: None)
  Receive Date: 20100813
  Receipt Date: 20100728
  Transmission Date: 20110219
  Serious: Yes (Other)
  Sender: FDA-Public Use
  Company Number: 7011777

PATIENT
  Age: 63 Year
  Sex: Female

DRUGS (8)
  1. REBIF [Suspect]
     Indication: MULTIPLE SCLEROSIS
     Dosage: 44 MCG, 3 IN 1 WK, SUBCUTANEOUS
     Route: 058
     Dates: start: 20060331
  2. RED YEAST EXTRACT (ALL OTHER THERAPEUTIC PRODUCTS) [Concomitant]
  3. FISH OIL (FISH OIL) [Concomitant]
  4. DITROPAN [Concomitant]
  5. CALCIUM (CALCIUM) [Concomitant]
  6. MULTIVITAMIN (MULTIVITAMIN /00831701/) [Concomitant]
  7. ASPIRIN [Concomitant]
  8. COENZYME Q (ALL OTHER THERAPEUTIC PRODUCTS) [Concomitant]

REACTIONS (3)
  - BALANCE DISORDER [None]
  - MENISCUS LESION [None]
  - SCIATICA [None]
